FAERS Safety Report 11277379 (Version 1)
Quarter: 2015Q3

REPORT INFORMATION
  Report Type: Report from Study
  Country: BG (occurrence: BG)
  Receive Date: 20150716
  Receipt Date: 20150716
  Transmission Date: 20151125
  Serious: Yes (Death)
  Sender: FDA-Public Use
  Company Number: BG-ASTRAZENECA-2015SE67554

PATIENT
  Age: 83 Year
  Sex: Female
  Weight: 48 kg

DRUGS (7)
  1. LINIPRIL [Concomitant]
     Active Substance: LISINOPRIL
     Indication: HYPERTENSION
     Route: 048
     Dates: start: 20130324, end: 20130424
  2. LACIPIL [Concomitant]
     Active Substance: LACIDIPINE
     Indication: HYPERTENSION
     Route: 048
     Dates: start: 20130324, end: 20130730
  3. CO-LINIPRIL [Concomitant]
     Indication: HYPERTENSION
     Dosage: 20/12.5 MG DAILY
     Route: 048
     Dates: start: 20130424
  4. BISOGAMMA [Concomitant]
     Indication: HYPERTENSION
     Route: 048
     Dates: start: 20130324
  5. DEHIDRATIN NEO [Concomitant]
     Indication: HYPERTENSION
     Route: 048
     Dates: start: 20130324, end: 20130424
  6. BISOGAMMA [Concomitant]
     Indication: ANGINA PECTORIS
     Route: 048
     Dates: start: 20130324
  7. BRILIQUE [Suspect]
     Active Substance: TICAGRELOR
     Route: 048
     Dates: start: 20130214, end: 20130624

REACTIONS (2)
  - Death [Fatal]
  - Off label use [Fatal]
